FAERS Safety Report 19501847 (Version 1)
Quarter: 2021Q3

REPORT INFORMATION
  Report Type: Spontaneous
  Country: US (occurrence: US)
  Receive Date: 20210705
  Receipt Date: 20210705
  Transmission Date: 20211014
  Serious: Yes (Disabling)
  Sender: FDA-Public Use
  Company Number: None

PATIENT
  Age: 85 Year
  Sex: Female

DRUGS (15)
  1. CALCITRIOL. [Concomitant]
     Active Substance: CALCITRIOL
  2. AMLODIPINE [Concomitant]
     Active Substance: AMLODIPINE BESYLATE
  3. KETOCONAZOLE CREAM [Concomitant]
     Active Substance: KETOCONAZOLE
  4. LEVOTHYROXINE. [Concomitant]
     Active Substance: LEVOTHYROXINE
  5. MELOXICAM. [Concomitant]
     Active Substance: MELOXICAM
  6. SERTRALINE [Concomitant]
     Active Substance: SERTRALINE HYDROCHLORIDE
  7. ALLERGY TABS [Concomitant]
  8. MYRBETRIQ [Concomitant]
     Active Substance: MIRABEGRON
  9. PROLIA [Suspect]
     Active Substance: DENOSUMAB
     Indication: OSTEOPOROSIS
     Dates: start: 20210210
  10. OCUVITE [Concomitant]
     Active Substance: VITAMINS
  11. TRIAMCINOLONE ACET [Concomitant]
  12. AMOXICILLIN. [Concomitant]
     Active Substance: AMOXICILLIN
  13. LOSARTAN. [Concomitant]
     Active Substance: LOSARTAN
  14. FLUOCINONIDE. [Concomitant]
     Active Substance: FLUOCINONIDE
  15. VOCIV SHOT PHYSER [Concomitant]

REACTIONS (3)
  - Autoimmune disorder [None]
  - Rash [None]
  - Pruritus [None]

NARRATIVE: CASE EVENT DATE: 20210301
